FAERS Safety Report 16955590 (Version 5)
Quarter: 2019Q4

REPORT INFORMATION
  Report Type: Spontaneous
  Country: US (occurrence: US)
  Receive Date: 20191024
  Receipt Date: 20191216
  Transmission Date: 20200122
  Serious: No
  Sender: FDA-Public Use
  Company Number: US-PFIZER INC-2019452082

PATIENT
  Sex: Female

DRUGS (1)
  1. CLINDAMYCIN PALMITATE HCL [Suspect]
     Active Substance: CLINDAMYCIN PALMITATE HYDROCHLORIDE
     Indication: TOOTH INFECTION
     Dosage: 20 ML, 3X/DAY, [2 DOSES]

REACTIONS (4)
  - Product odour abnormal [Recovered/Resolved]
  - Throat irritation [Recovered/Resolved]
  - Product taste abnormal [Recovered/Resolved]
  - Poor quality product administered [Recovered/Resolved]
